FAERS Safety Report 7389359-3 (Version None)
Quarter: 2011Q2

REPORT INFORMATION
  Report Type: 
  Country: None (occurrence: None)
  Receive Date: 20110401
  Receipt Date: 20110320
  Transmission Date: 20111010
  Serious: Yes (Death, Life-Threatening, Hospitalization)
  Sender: FDA-Public Use
  Company Number: B0702812A

PATIENT
  Sex: Male
  Weight: 18 kg

DRUGS (2)
  1. ZINACEF [Suspect]
     Indication: PERITONSILLAR ABSCESS
     Dosage: 1.5G PER DAY
     Route: 042
     Dates: start: 20110223, end: 20110223
  2. METHYLPREDNISOLONE [Concomitant]
     Indication: PERITONSILLAR ABSCESS
     Dosage: 30MG PER DAY
     Route: 042
     Dates: start: 20110223, end: 20110223

REACTIONS (12)
  - BRAIN HYPOXIA [None]
  - BRONCHOSPASM [None]
  - FACE OEDEMA [None]
  - LOSS OF CONSCIOUSNESS [None]
  - CYANOSIS [None]
  - NAUSEA [None]
  - ANAPHYLACTIC SHOCK [None]
  - VOMITING [None]
  - LARYNGEAL OEDEMA [None]
  - RESTLESSNESS [None]
  - DIARRHOEA [None]
  - DYSPNOEA [None]
